FAERS Safety Report 9056013 (Version 2)
Quarter: 2013Q4

REPORT INFORMATION
  Report Type: Spontaneous
  Country: US (occurrence: US)
  Receive Date: 20130205
  Receipt Date: 20131212
  Transmission Date: 20140711
  Serious: Yes (Death, Other)
  Sender: FDA-Public Use
  Company Number: US-JNJFOC-20130200051

PATIENT
  Sex: 0

DRUGS (5)
  1. DOXORUBICIN [Suspect]
     Indication: HODGKIN^S DISEASE
     Dosage: DAYS 1 AND 15 OF EACH 28 DAY CYCLE FOR UPTO 6 CYCLES OF THERAPY
     Route: 042
  2. BRENTUXIMAB VEDOTIN [Suspect]
     Indication: HODGKIN^S DISEASE
     Route: 065
  3. VINBLASTINE [Suspect]
     Indication: HODGKIN^S DISEASE
     Dosage: DAYS 1 AND 15 OF EACH 28 DAY CYCLE FOR UPTO 6 CYCLES OF THERAPY
     Route: 065
  4. DACARBAZINE [Suspect]
     Indication: HODGKIN^S DISEASE
     Dosage: DAYS 1 AND 15 OF EACH 28 DAY CYCLE FOR UPTO 6 CYCLES OF THERAPY
     Route: 065
  5. BLEOMYCIN [Suspect]
     Indication: HODGKIN^S DISEASE
     Dosage: DAYS 1 AND 15 OF EACH 28 DAY CYCLE FOR UPTO 6 CYCLES OF THERAPY
     Route: 065

REACTIONS (2)
  - Hyponatraemia [Fatal]
  - Pulmonary toxicity [Fatal]
